FAERS Safety Report 12862640 (Version 2)
Quarter: 2017Q2

REPORT INFORMATION
  Report Type: Spontaneous
  Country: US (occurrence: US)
  Receive Date: 20161019
  Receipt Date: 20170628
  Transmission Date: 20170830
  Serious: Yes (Other)
  Sender: FDA-Public Use
  Company Number: US-BRISTOL-MYERS SQUIBB COMPANY-BMS-2016-086783

PATIENT
  Sex: Male

DRUGS (1)
  1. ORENCIA [Suspect]
     Active Substance: ABATACEPT
     Indication: RHEUMATOID ARTHRITIS
     Dosage: 125 MG, QWK
     Route: 058
     Dates: start: 20160815

REACTIONS (6)
  - Ophthalmic herpes zoster [Unknown]
  - Rheumatoid lung [Unknown]
  - Mass [Unknown]
  - Drug ineffective [Unknown]
  - Respiratory tract infection [Unknown]
  - Ear infection [Unknown]
